FAERS Safety Report 9985720 (Version 1)
Quarter: 2014Q1

REPORT INFORMATION
  Report Type: Spontaneous
  Country: AT (occurrence: AT)
  Receive Date: 20140307
  Receipt Date: 20140307
  Transmission Date: 20141002
  Serious: Yes (Other)
  Sender: FDA-Public Use
  Company Number: AT-ABBVIE-14P-009-1209865-00

PATIENT
  Age: 73 Year
  Sex: Female

DRUGS (19)
  1. DEPAKINE CHRONO [Suspect]
     Indication: PRODUCT USED FOR UNKNOWN INDICATION
     Dates: start: 201301, end: 20130605
  2. DEPAKINE CHRONO [Suspect]
     Dates: start: 20130606, end: 20130630
  3. GABAPENTIN [Suspect]
     Indication: PRODUCT USED FOR UNKNOWN INDICATION
     Dates: start: 201301, end: 20130609
  4. GABAPENTIN [Suspect]
     Dates: start: 20130610, end: 20130616
  5. DULOXETINE HYDROCHLORIDE [Suspect]
     Indication: PRODUCT USED FOR UNKNOWN INDICATION
     Dates: start: 201301, end: 20130619
  6. MIANSERIN HYDROCHLORIDE [Suspect]
     Indication: PRODUCT USED FOR UNKNOWN INDICATION
     Dates: start: 201301, end: 20130623
  7. ALPRAZOLAM [Suspect]
     Indication: PRODUCT USED FOR UNKNOWN INDICATION
     Dates: start: 20130427, end: 20130522
  8. ALPRAZOLAM [Suspect]
     Dates: start: 20130523, end: 20130602
  9. ALPRAZOLAM [Suspect]
     Dates: start: 20130603, end: 20130603
  10. ALPRAZOLAM [Suspect]
     Dates: start: 20130604, end: 20130616
  11. QUETIAPINE FUMARATE [Suspect]
     Indication: PRODUCT USED FOR UNKNOWN INDICATION
     Dates: start: 20130521, end: 20130521
  12. QUETIAPINE FUMARATE [Suspect]
     Dates: start: 20130522, end: 20130522
  13. QUETIAPINE FUMARATE [Suspect]
     Dates: start: 20130523, end: 20130523
  14. QUETIAPINE FUMARATE [Suspect]
     Dates: start: 20130527, end: 20130527
  15. QUETIAPINE FUMARATE [Suspect]
     Dates: start: 20130528, end: 20130528
  16. QUETIAPINE FUMARATE [Suspect]
     Dates: start: 20130529, end: 20130529
  17. DIAZEPAM [Concomitant]
     Indication: PRODUCT USED FOR UNKNOWN INDICATION
     Dates: start: 20130427, end: 20130520
  18. SUCRALFATE [Concomitant]
     Indication: PRODUCT USED FOR UNKNOWN INDICATION
     Dates: start: 20130427, end: 20130527
  19. THROMBO ASS [Concomitant]
     Indication: PRODUCT USED FOR UNKNOWN INDICATION
     Dates: start: 20130518

REACTIONS (2)
  - Lip blister [Recovered/Resolved]
  - Dry mouth [Recovered/Resolved]
